FAERS Safety Report 9478957 (Version 2)
Quarter: 2013Q3

REPORT INFORMATION
  Report Type: Spontaneous
  Country: US (occurrence: US)
  Receive Date: 20130827
  Receipt Date: 20130916
  Transmission Date: 20140515
  Serious: Yes (Other)
  Sender: FDA-Public Use
  Company Number: US-TEVA-427661USA

PATIENT
  Age: 59 Year
  Sex: Female
  Weight: 90.8 kg

DRUGS (6)
  1. GLIMEPIRIDE [Suspect]
     Indication: TYPE 2 DIABETES MELLITUS
     Dosage: 4 MILLIGRAM DAILY;
  2. METFORMIN [Suspect]
  3. SIMVASTATIN [Concomitant]
     Indication: BLOOD CHOLESTEROL
     Dosage: 40 MILLIGRAM DAILY;
  4. GEMFIBROZIL [Concomitant]
     Indication: BLOOD CHOLESTEROL
     Dosage: 1200 MILLIGRAM DAILY;
  5. FIBRATES [Concomitant]
     Indication: BLOOD CHOLESTEROL
  6. NITROSTAT [Concomitant]
     Indication: ANGINA PECTORIS

REACTIONS (7)
  - Myocardial infarction [Unknown]
  - Hypertrophic cardiomyopathy [Unknown]
  - Cardiac disorder [Unknown]
  - Chest pain [Unknown]
  - Blood glucose increased [Unknown]
  - Stress [Unknown]
  - Depressed mood [Unknown]
